FAERS Safety Report 5146972-1 (Version None)
Quarter: 2006Q4

REPORT INFORMATION
  Report Type: 
  Country: None (occurrence: None)
  Receive Date: 20061103
  Receipt Date: 20061024
  Transmission Date: 20070319
  Serious: Yes (Other)
  Sender: FDA-Public Use
  Company Number: 2006125480

PATIENT
  Age: 66 Year
  Sex: Female
  Weight: 84 kg

DRUGS (5)
  1. SILDENAFIL CITRATE [Suspect]
     Indication: PULMONARY HYPERTENSION
     Dosage: 75 MG (25 MG, 3 IN 1 D), ORAL
     Route: 048
     Dates: start: 20060601
  2. ALL OTHER THERAPEUTIC PRODUCTS [Concomitant]
  3. ALENDRONATE SODIUM [Concomitant]
  4. ISORDIL [Concomitant]
  5. DILACORON (VERAPAMIL HYDROCHLORIDE) [Concomitant]

REACTIONS (6)
  - ANGINA PECTORIS [None]
  - CARDIOMEGALY [None]
  - CONDITION AGGRAVATED [None]
  - DRUG INEFFECTIVE [None]
  - OEDEMA [None]
  - PULMONARY HYPERTENSION [None]
